FAERS Safety Report 15678157 (Version 1)
Quarter: 2018Q4

REPORT INFORMATION
  Report Type: Spontaneous
  Country: NL (occurrence: NL)
  Receive Date: 20181201
  Receipt Date: 20181201
  Transmission Date: 20190205
  Serious: Yes (Hospitalization, Other)
  Sender: FDA-Public Use
  Company Number: NL-UNICHEM PHARMACEUTICALS (USA) INC-UCM201811-000330

PATIENT
  Age: 65 Year
  Sex: Male

DRUGS (5)
  1. OLANZAPINE. [Concomitant]
     Active Substance: OLANZAPINE
  2. DIVALPROEX SODIUM. [Suspect]
     Active Substance: DIVALPROEX SODIUM
  3. ALPHA LIPOIC ACID [Concomitant]
     Active Substance: .ALPHA.-LIPOIC ACID
     Dosage: WAS THEN REDUCED FROM 3000 TO 1000 MG
  4. LITHIUM CARBONATE. [Concomitant]
     Active Substance: LITHIUM CARBONATE
  5. DIVALPROEX SODIUM. [Suspect]
     Active Substance: DIVALPROEX SODIUM

REACTIONS (11)
  - Somnolence [Recovered/Resolved]
  - Tremor [Recovered/Resolved]
  - Facial paresis [Recovered/Resolved]
  - Condition aggravated [Recovered/Resolved]
  - Micturition disorder [Recovered/Resolved]
  - Asthenia [Recovered/Resolved]
  - Slow response to stimuli [Recovered/Resolved]
  - Delirium [Recovered/Resolved]
  - Toxicity to various agents [Recovered/Resolved]
  - Dysphagia [Recovered/Resolved]
  - Malaise [Recovered/Resolved]
